FAERS Safety Report 9966785 (Version 3)
Quarter: 2014Q2

REPORT INFORMATION
  Report Type: Spontaneous
  Country: US (occurrence: US)
  Receive Date: 20140305
  Receipt Date: 20140425
  Transmission Date: 20141212
  Serious: Yes (Other)
  Sender: FDA-Public Use
  Company Number: US-OTSUKA-US-2014-10395

PATIENT
  Age: 20 Year
  Sex: Female
  Weight: 118.8 kg

DRUGS (4)
  1. ABILIFY MAINTENA [Suspect]
     Indication: SCHIZOPHRENIA
     Dosage: 400 MG MILLIGRAM(S), Q4WKS
     Route: 030
     Dates: start: 20130918, end: 20140204
  2. RISPERDAL CONSTA [Suspect]
     Indication: SCHIZOPHRENIA
     Dosage: 37.5 MG MILLIGRAM(S), Q2W
     Route: 065
     Dates: start: 20110907, end: 20130918
  3. CONGENTIN [Concomitant]
     Indication: PRODUCT USED FOR UNKNOWN INDICATION
     Dosage: 1 MG MILLIGRAM(S), BID
     Route: 065
  4. TRAZODONE [Concomitant]
     Indication: PRODUCT USED FOR UNKNOWN INDICATION
     Dosage: 100 UNKNOWN, HS
     Route: 065

REACTIONS (2)
  - Eye movement disorder [Not Recovered/Not Resolved]
  - Hallucination, auditory [Unknown]
